FAERS Safety Report 23290579 (Version 1)
Quarter: 2023Q4

REPORT INFORMATION
  Report Type: Spontaneous
  Country: CH (occurrence: CH)
  Receive Date: 20231213
  Receipt Date: 20231213
  Transmission Date: 20240110
  Serious: Yes (Hospitalization)
  Sender: FDA-Public Use
  Company Number: CH-SANDOZ-SDZ2023CH066211

PATIENT
  Age: 54 Year
  Sex: Female

DRUGS (10)
  1. ATORVASTATIN [Suspect]
     Active Substance: ATORVASTATIN
     Indication: Suicide attempt
     Dosage: 400 MG
     Route: 065
     Dates: start: 20230430
  2. BROMAZEPAM [Suspect]
     Active Substance: BROMAZEPAM
     Indication: Suicide attempt
     Dosage: 24 MG
     Route: 048
     Dates: start: 20230430
  3. DAFALGAN [Suspect]
     Active Substance: ACETAMINOPHEN
     Indication: Suicide attempt
     Dosage: 2000 MG
     Route: 048
     Dates: start: 20230430
  4. NEURONTIN [Suspect]
     Active Substance: GABAPENTIN
     Indication: Suicide attempt
     Dosage: 700 MG
     Route: 048
     Dates: start: 20230430
  5. OXYCODONE [Suspect]
     Active Substance: OXYCODONE
     Indication: Suicide attempt
     Dosage: 50 MG
     Route: 048
     Dates: start: 20230430
  6. OXYCODONE HYDROCHLORIDE [Suspect]
     Active Substance: OXYCODONE HYDROCHLORIDE
     Indication: Suicide attempt
     Dosage: 15 MG
     Route: 048
     Dates: start: 20230430
  7. QUETIAPINE FUMARATE [Suspect]
     Active Substance: QUETIAPINE FUMARATE
     Indication: Suicide attempt
     Dosage: 1000 MG
     Route: 048
     Dates: start: 20230430
  8. SERTRALINE HYDROCHLORIDE [Suspect]
     Active Substance: SERTRALINE HYDROCHLORIDE
     Indication: Suicide attempt
     Dosage: 100 MG
     Route: 048
     Dates: start: 20230430
  9. TIZANIDINE [Suspect]
     Active Substance: TIZANIDINE
     Indication: Suicide attempt
     Dosage: 36 MG
     Route: 042
     Dates: start: 20230430
  10. TRAZODONE HYDROCHLORIDE [Suspect]
     Active Substance: TRAZODONE HYDROCHLORIDE
     Indication: Suicide attempt
     Dosage: 1650 MG
     Route: 048
     Dates: start: 20230430

REACTIONS (2)
  - Suicide attempt [Recovered/Resolved]
  - Intentional overdose [Recovered/Resolved]

NARRATIVE: CASE EVENT DATE: 20230430
